FAERS Safety Report 16157337 (Version 1)
Quarter: 2019Q2

REPORT INFORMATION
  Report Type: Spontaneous
  Country: US (occurrence: US)
  Receive Date: 20190403
  Receipt Date: 20190403
  Transmission Date: 20190711
  Serious: No
  Sender: FDA-Public Use
  Company Number: None

PATIENT
  Age: 53 Year
  Sex: Male
  Weight: 74.25 kg

DRUGS (2)
  1. EQUATE OMEPRAZOLE DELAYED RELEASE ACID REDUCER [Suspect]
     Active Substance: OMEPRAZOLE
     Indication: GASTROOESOPHAGEAL REFLUX DISEASE
     Dosage: ?          QUANTITY:1 TABLET(S);?
     Route: 048
     Dates: start: 20190330, end: 20190403
  2. PHENYTOIN. [Concomitant]
     Active Substance: PHENYTOIN

REACTIONS (3)
  - Drug ineffective [None]
  - Product dosage form issue [None]
  - Condition aggravated [None]

NARRATIVE: CASE EVENT DATE: 20190403
